FAERS Safety Report 8826040 (Version 1)
Quarter: 2012Q4

REPORT INFORMATION
  Report Type: Report from Study
  Country: FR (occurrence: FR)
  Receive Date: 20121005
  Receipt Date: 20121005
  Transmission Date: 20130627
  Serious: Yes (Hospitalization)
  Sender: FDA-Public Use
  Company Number: FR-ROCHE-1134489

PATIENT
  Age: 38 Year
  Sex: Male

DRUGS (13)
  1. ROACTEMRA [Suspect]
     Indication: RHEUMATOID ARTHRITIS
     Route: 042
     Dates: start: 20111103
  2. ROACTEMRA [Suspect]
     Route: 042
     Dates: start: 20111215
  3. ROACTEMRA [Suspect]
     Route: 042
     Dates: start: 20120112
  4. ROACTEMRA [Suspect]
     Route: 042
     Dates: start: 20120308
  5. CORTANCYL [Concomitant]
     Route: 065
     Dates: start: 20020513
  6. CORTANCYL [Concomitant]
     Route: 065
  7. CORTANCYL [Concomitant]
     Route: 065
  8. CORTANCYL [Concomitant]
     Route: 065
  9. METHOTREXATE [Concomitant]
     Route: 065
  10. ARAVA [Concomitant]
  11. SPECIAFOLDINE [Concomitant]
     Route: 065
  12. TARDYFERON [Concomitant]
     Route: 065
  13. PARACETAMOL [Concomitant]

REACTIONS (9)
  - Pain in extremity [Recovered/Resolved]
  - Paraesthesia [Recovered/Resolved]
  - Arthralgia [Recovered/Resolved]
  - Chills [Recovered/Resolved]
  - Infection [Recovered/Resolved]
  - Tooth infection [Recovered/Resolved]
  - Pyrexia [Recovered/Resolved]
  - Gastroenteritis [Recovered/Resolved]
  - Bronchitis [Recovered/Resolved]
